FAERS Safety Report 12965640 (Version 1)
Quarter: 2016Q4

REPORT INFORMATION
  Report Type: Report from Study
  Country: US (occurrence: US)
  Receive Date: 20161122
  Receipt Date: 20161122
  Transmission Date: 20170207
  Serious: Yes (Other)
  Sender: FDA-Public Use
  Company Number: US-BAYER-2016-219615

PATIENT
  Age: 65 Year
  Sex: Male

DRUGS (1)
  1. NEXAVAR [Suspect]
     Active Substance: SORAFENIB
     Indication: METASTASES TO LUNG
     Dosage: 400 MG, BID
     Route: 048
     Dates: start: 20161101

REACTIONS (4)
  - Anxiety [Recovered/Resolved]
  - Diarrhoea [Not Recovered/Not Resolved]
  - Off label use [None]
  - Chest pain [Recovered/Resolved]

NARRATIVE: CASE EVENT DATE: 20161102
